FAERS Safety Report 5102178-3 (Version None)
Quarter: 2006Q3

REPORT INFORMATION
  Report Type: 
  Country: None (occurrence: None)
  Receive Date: 20060912
  Receipt Date: 20060822
  Transmission Date: 20061208
  Serious: Yes (Other)
  Sender: FDA-Public Use
  Company Number: PHEH2006US10734

PATIENT
  Age: 35 Year
  Sex: Female

DRUGS (4)
  1. ZELNORM [Suspect]
     Indication: IRRITABLE BOWEL SYNDROME
     Dosage: 6 MG, BID
     Route: 048
     Dates: start: 20060412, end: 20060816
  2. ZELNORM [Suspect]
     Dosage: 2 MG, BID
     Route: 048
  3. PREVACID [Concomitant]
     Indication: DYSPEPSIA
     Dosage: 30 MG, QD
     Route: 048
     Dates: start: 20060412
  4. LEVSIN/SL [Concomitant]
     Indication: ABDOMINAL PAIN
     Dosage: UNK, PRN
     Dates: start: 20060412

REACTIONS (1)
  - DIARRHOEA HAEMORRHAGIC [None]
